FAERS Safety Report 4305352-9 (Version None)
Quarter: 2004Q1

REPORT INFORMATION
  Report Type: 
  Country: None (occurrence: None)
  Receive Date: 20040226
  Receipt Date: 20030709
  Transmission Date: 20041129
  Serious: No
  Sender: FDA-Public Use
  Company Number: US-BRISTOL-MYERS SQUIBB COMPANY-12321477

PATIENT
  Age: 5 Decade
  Sex: Female

DRUGS (2)
  1. TAXOL [Suspect]
     Indication: PERITONEAL CARCINOMA
     Route: 042
  2. SYNTHROID [Concomitant]

REACTIONS (1)
  - LABORATORY TEST ABNORMAL [None]
